FAERS Safety Report 5246435-9 (Version None)
Quarter: 2007Q1

REPORT INFORMATION
  Report Type: 
  Country: None (occurrence: None)
  Receive Date: 20070222
  Receipt Date: 20070222
  Transmission Date: 20070707
  Serious: Yes (Death)
  Sender: FDA-Public Use
  Company Number: None

PATIENT
  Age: 72 Year
  Sex: Male
  Weight: 136.0791 kg

DRUGS (1)
  1. KETEK [Suspect]
     Indication: SINUS DISORDER
     Dosage: 14 TABLETS  TWICE DAILY  PO
     Route: 048
     Dates: start: 20051214, end: 20051220

REACTIONS (4)
  - PSORIASIS [None]
  - RASH GENERALISED [None]
  - RENAL FAILURE [None]
  - SEPSIS [None]
